FAERS Safety Report 6507288-1 (Version None)
Quarter: 2009Q4

REPORT INFORMATION
  Report Type: 
  Country: None (occurrence: None)
  Receive Date: 20091201
  Receipt Date: 20090804
  Transmission Date: 20100525
  Serious: Yes (Hospitalization)
  Sender: FDA-Public Use
  Company Number: 2008-185833-NL

PATIENT
  Age: 33 Year
  Sex: Female
  Weight: 49.9 kg

DRUGS (2)
  1. NUVARING [Suspect]
     Indication: DYSMENORRHOEA
     Dates: start: 20050901, end: 20071224
  2. NUVARING [Suspect]
     Indication: MENSTRUATION IRREGULAR
     Dates: start: 20050901, end: 20071224

REACTIONS (11)
  - ARTHRALGIA [None]
  - BLOOD GLUCOSE ABNORMAL [None]
  - CONTUSION [None]
  - HUMAN BITE [None]
  - HYDRONEPHROSIS [None]
  - OFF LABEL USE [None]
  - OVARIAN CYST RUPTURED [None]
  - PULMONARY EMBOLISM [None]
  - RHINITIS ALLERGIC [None]
  - URINARY TRACT INFECTION [None]
  - VERTIGO POSITIONAL [None]
